FAERS Safety Report 7974595-5 (Version None)
Quarter: 2011Q4

REPORT INFORMATION
  Report Type: 
  Country: None (occurrence: None)
  Receive Date: 20111213
  Receipt Date: 20111207
  Transmission Date: 20120403
  Serious: Yes (Hospitalization)
  Sender: FDA-Public Use
  Company Number: US-ABBOTT-11P-163-0871724-00

PATIENT
  Sex: Female
  Weight: 60.33 kg

DRUGS (6)
  1. VERAPAMIL [Concomitant]
     Indication: PRODUCT USED FOR UNKNOWN INDICATION
     Dosage: 1 TABLET EVERY 12 HOURS FOR 360 DAYS
     Route: 048
  2. LORCET-HD [Concomitant]
     Indication: PRODUCT USED FOR UNKNOWN INDICATION
     Dosage: 5-500 MG PER CAPSULE 1 EVERY 6 HOURS AS NEEDED
     Route: 048
  3. BACLOFEN [Concomitant]
     Indication: PRODUCT USED FOR UNKNOWN INDICATION
     Dosage: 1 TABLET 2 X DIALY FOR 360 DAYS
     Route: 048
  4. GABAPENTIN [Concomitant]
     Indication: PRODUCT USED FOR UNKNOWN INDICATION
  5. HUMIRA [Suspect]
     Indication: PSORIASIS
     Route: 058
     Dates: start: 20080601, end: 20110807
  6. MELOXICAM [Concomitant]
     Indication: PRODUCT USED FOR UNKNOWN INDICATION
     Route: 048

REACTIONS (14)
  - HYPOAESTHESIA [None]
  - GENERAL PHYSICAL HEALTH DETERIORATION [None]
  - DIPLOPIA [None]
  - GUILLAIN-BARRE SYNDROME [None]
  - WHEELCHAIR USER [None]
  - PAIN IN EXTREMITY [None]
  - PSORIASIS [None]
  - BACK PAIN [None]
  - MIGRAINE [None]
  - APHASIA [None]
  - WALKING AID USER [None]
  - AREFLEXIA [None]
  - STAPHYLOCOCCAL INFECTION [None]
  - RASH [None]
